FAERS Safety Report 18286218 (Version 1)
Quarter: 2020Q3

REPORT INFORMATION
  Report Type: Spontaneous
  Country: IS (occurrence: IS)
  Receive Date: 20200919
  Receipt Date: 20200919
  Transmission Date: 20201103
  Serious: Yes (Other)
  Sender: FDA-Public Use
  Company Number: IS-INCYTE CORPORATION-2020IN009089

PATIENT

DRUGS (1)
  1. JAKAVI [Suspect]
     Active Substance: RUXOLITINIB
     Indication: CHRONIC MYELOMONOCYTIC LEUKAEMIA
     Dosage: 10 MG, BID
     Route: 065
     Dates: start: 2020, end: 2020

REACTIONS (2)
  - Acute respiratory distress syndrome [Unknown]
  - Product use in unapproved indication [Unknown]
